FAERS Safety Report 9019322 (Version 2)
Quarter: 2013Q1

REPORT INFORMATION
  Report Type: Spontaneous
  Country: BR (occurrence: BR)
  Receive Date: 20130118
  Receipt Date: 20130212
  Transmission Date: 20140127
  Serious: Yes (Hospitalization, Disabling)
  Sender: FDA-Public Use
  Company Number: BR-B.I. PHARMACEUTICALS,INC./RIDGEFIELD-2013-BR-00041BR

PATIENT
  Sex: Female

DRUGS (5)
  1. SPIRIVA RESPIMAT [Suspect]
     Indication: EMPHYSEMA
     Route: 055
     Dates: start: 2007
  2. ALENIA [Concomitant]
     Indication: EMPHYSEMA
  3. SERETIDE [Concomitant]
     Indication: EMPHYSEMA
  4. DRUG FOR LABYRINTHISTIS [Concomitant]
     Indication: LABYRINTHITIS
  5. DRUG FOR HYPERTENSION [Concomitant]
     Indication: HYPERTENSION

REACTIONS (3)
  - Dyspnoea [Not Recovered/Not Resolved]
  - Asthenia [Unknown]
  - Oxygen saturation decreased [Unknown]
